FAERS Safety Report 19387803 (Version 1)
Quarter: 2021Q2

REPORT INFORMATION
  Report Type: Spontaneous
  Country: US (occurrence: US)
  Receive Date: 20210605
  Receipt Date: 20210605
  Transmission Date: 20210717
  Serious: Yes (Hospitalization)
  Sender: FDA-Public Use
  Company Number: None

PATIENT
  Age: 77 Year
  Sex: Female
  Weight: 88.5 kg

DRUGS (2)
  1. 5?FLUOROURACIL (5?FU) [Suspect]
     Active Substance: FLUOROURACIL
     Dates: end: 20210510
  2. BEVACIZUMAB (RHYMAB VEGF) [Suspect]
     Active Substance: BEVACIZUMAB
     Dates: end: 20210510

REACTIONS (9)
  - Bacterial infection [None]
  - Neuropathy peripheral [None]
  - Arthralgia [None]
  - Somnolence [None]
  - Urinary tract infection [None]
  - Abdominal pain [None]
  - Sepsis [None]
  - Ureteric obstruction [None]
  - Confusional state [None]

NARRATIVE: CASE EVENT DATE: 20210517
